FAERS Safety Report 15190473 (Version 4)
Quarter: 2018Q4

REPORT INFORMATION
  Report Type: Spontaneous
  Country: US (occurrence: US)
  Receive Date: 20180724
  Receipt Date: 20181212
  Transmission Date: 20190204
  Serious: No
  Sender: FDA-Public Use
  Company Number: US-GLAXOSMITHKLINE-US2018GSK129138

PATIENT

DRUGS (16)
  1. DONEPEZIL. [Suspect]
     Active Substance: DONEPEZIL
  2. ONDANSETRON [Suspect]
     Active Substance: ONDANSETRON
  3. FOLIC ACID TABLET [Suspect]
     Active Substance: FOLIC ACID
  4. BUPROPION MODIFIED-RELEASE TABLET [Concomitant]
     Active Substance: BUPROPION
     Dosage: UNK
     Dates: start: 20160506
  5. OMEPRAZOLE. [Suspect]
     Active Substance: OMEPRAZOLE
  6. NITROFUR [Suspect]
     Active Substance: NITROFURANTOIN
  7. IBUPROFEN. [Suspect]
     Active Substance: IBUPROFEN
  8. MOVIPREP [Suspect]
     Active Substance: ASCORBIC ACID\POLYETHYLENE GLYCOL 3350\POTASSIUM CHLORIDE\SODIUM ASCORBATE\SODIUM CHLORIDE\SODIUM SULFATE
  9. PROAIR HFA [Suspect]
     Active Substance: ALBUTEROL SULFATE
  10. ARIPIPRAZOLE. [Concomitant]
     Active Substance: ARIPIPRAZOLE
  11. GABAPENTIN. [Suspect]
     Active Substance: GABAPENTIN
  12. PRAMIPEXOLE. [Suspect]
     Active Substance: PRAMIPEXOLE
  13. DULOXETINE. [Concomitant]
     Active Substance: DULOXETINE
  14. BETAMETHASONE DIPROPIONATE. [Suspect]
     Active Substance: BETAMETHASONE DIPROPIONATE
  15. CYCLOBENZAPR [Suspect]
     Active Substance: CYCLOBENZAPRINE
  16. METHOTREXATE. [Concomitant]
     Active Substance: METHOTREXATE

REACTIONS (3)
  - Eating disorder [Unknown]
  - Weight increased [Unknown]
  - Compulsive shopping [Unknown]
